FAERS Safety Report 6376469-2 (Version None)
Quarter: 2009Q3

REPORT INFORMATION
  Report Type: 
  Country: None (occurrence: None)
  Receive Date: 20090925
  Receipt Date: 20090915
  Transmission Date: 20100115
  Serious: Yes (Life-Threatening, Hospitalization, Disabling, Other)
  Sender: FDA-Public Use
  Company Number: JP-BAYER-200911044BYL

PATIENT
  Age: 39 Year
  Sex: Female
  Weight: 57 kg

DRUGS (19)
  1. FLUDARA [Suspect]
     Indication: ACUTE MYELOID LEUKAEMIA
     Dosage: AS USED: 40 MG  UNIT DOSE: 50 MG
     Route: 042
     Dates: start: 20081031, end: 20081104
  2. ALKERAN [Suspect]
     Indication: ACUTE MYELOID LEUKAEMIA
     Dosage: AS USED: 110 MG
     Route: 042
     Dates: start: 20081103, end: 20081104
  3. PROGRAF [Suspect]
     Indication: PROPHYLAXIS AGAINST GRAFT VERSUS HOST DISEASE
     Route: 065
     Dates: start: 20081105, end: 20090216
  4. SEROTONE [Concomitant]
     Route: 042
     Dates: start: 20081103, end: 20081104
  5. LASIX [Concomitant]
     Route: 065
     Dates: start: 20081103, end: 20081117
  6. NOVAMIN [Concomitant]
     Route: 065
     Dates: start: 20081105, end: 20081201
  7. SOLU-MEDROL [Concomitant]
     Route: 065
     Dates: start: 20081106, end: 20081106
  8. METHOTREXATE [Concomitant]
     Indication: PROPHYLAXIS AGAINST GRAFT VERSUS HOST DISEASE
     Dosage: 15MG, 10MG
     Route: 065
     Dates: start: 20081107, end: 20081112
  9. ORGARAN [Concomitant]
     Route: 042
     Dates: start: 20081107, end: 20080101
  10. INOVAN [Concomitant]
     Route: 065
     Dates: start: 20081107, end: 20081109
  11. FENTANYL TRANSDERMAL SYSTEM [Concomitant]
     Route: 065
     Dates: start: 20081110, end: 20080101
  12. SOLDACTONE [Concomitant]
     Route: 065
     Dates: start: 20081110, end: 20081117
  13. DOBUPUM [Concomitant]
     Route: 065
     Dates: start: 20081111, end: 20081117
  14. GRAN [Concomitant]
     Indication: INFECTION PROPHYLAXIS
     Route: 065
     Dates: start: 20081111, end: 20081218
  15. NEUART [Concomitant]
     Route: 042
     Dates: start: 20081111, end: 20081113
  16. OMEPRAL [Concomitant]
     Route: 042
     Dates: start: 20081112, end: 20081217
  17. HANP [Concomitant]
     Route: 042
     Dates: start: 20081112, end: 20081117
  18. DENOSINE [Concomitant]
     Indication: INFECTION PROPHYLAXIS
     Route: 042
     Dates: start: 20081227, end: 20090105
  19. INTRALIPID 10% [Concomitant]
     Dosage: UNIT DOSE: 10 %
     Route: 042
     Dates: start: 20081230, end: 20090117

REACTIONS (10)
  - ACUTE GRAFT VERSUS HOST DISEASE [None]
  - CANDIDA SEPSIS [None]
  - CARDIAC FAILURE CONGESTIVE [None]
  - ENGRAFT FAILURE [None]
  - RENAL DISORDER [None]
  - RENAL FAILURE ACUTE [None]
  - SEPSIS [None]
  - SKIN EROSION [None]
  - SKIN ULCER [None]
  - SPLENIC ABSCESS [None]
